FAERS Safety Report 14395074 (Version 2)
Quarter: 2018Q1

REPORT INFORMATION
  Report Type: Spontaneous
  Country: JP (occurrence: JP)
  Receive Date: 20180116
  Receipt Date: 20180315
  Transmission Date: 20180509
  Serious: Yes (Death, Other)
  Sender: FDA-Public Use
  Company Number: JP-PFIZER INC-2017507461

PATIENT
  Age: 79 Year
  Sex: Male
  Weight: 67.8 kg

DRUGS (4)
  1. PACLITAXEL 100MG/16.7ML HOSPIRA [Suspect]
     Active Substance: PACLITAXEL
     Indication: GASTRIC CANCER
     Dosage: 130 (UNIT UNKNOWN), DAILY
     Route: 042
     Dates: start: 20160805
  2. PACLITAXEL 100MG/16.7ML HOSPIRA [Suspect]
     Active Substance: PACLITAXEL
     Dosage: 100 (UNIT UNKNOWN), DAILY
     Route: 042
     Dates: start: 20160819
  3. CYRAMZA [Concomitant]
     Active Substance: RAMUCIRUMAB
     Dosage: UNK
  4. ALBUMIN [Concomitant]
     Active Substance: ALBUMIN HUMAN
     Indication: ASCITES
     Dosage: 50 ML, (FOR THREE DAYS)
     Dates: start: 20160826

REACTIONS (5)
  - Interstitial lung disease [Fatal]
  - Blood creatinine increased [Unknown]
  - Blood lactate dehydrogenase increased [Unknown]
  - Blood urea increased [Unknown]
  - Febrile neutropenia [Unknown]

NARRATIVE: CASE EVENT DATE: 20160817
